FAERS Safety Report 9139007 (Version 2)
Quarter: 2013Q2

REPORT INFORMATION
  Report Type: Spontaneous
  Country: US (occurrence: US)
  Receive Date: 20130305
  Receipt Date: 20130429
  Transmission Date: 20140414
  Serious: Yes (Hospitalization)
  Sender: FDA-Public Use
  Company Number: US-BRISTOL-MYERS SQUIBB COMPANY-17413683

PATIENT
  Age: 64 Year
  Sex: Female
  Weight: 126.98 kg

DRUGS (18)
  1. TAXOL INJ 300 MG/50 ML [Suspect]
     Indication: BREAST CANCER
     Route: 042
     Dates: start: 20121016, end: 20121113
  2. TAXOL INJ 300 MG/50 ML [Suspect]
     Indication: LYMPHOMA
     Route: 042
     Dates: start: 20121016, end: 20121113
  3. MAGNESIUM [Suspect]
  4. POTASSIUM [Suspect]
  5. LOSARTAN [Suspect]
  6. SIMVASTATIN [Suspect]
  7. VITAMIN D [Concomitant]
  8. ZOLPIDEM [Concomitant]
  9. VICTOZA [Concomitant]
  10. SINGULAIR [Concomitant]
  11. METFORMIN [Concomitant]
  12. LANTUS [Concomitant]
  13. HYDROCHLOROTHIAZIDE [Concomitant]
  14. GLIMEPIRIDE [Concomitant]
  15. FLOVENT [Concomitant]
  16. AMLODIPINE [Concomitant]
  17. CLONIDINE [Concomitant]
  18. ASPIRIN [Concomitant]

REACTIONS (5)
  - Gait disturbance [Recovering/Resolving]
  - Fall [Unknown]
  - Neuropathy peripheral [Recovering/Resolving]
  - Sepsis [Recovering/Resolving]
  - Hypoaesthesia oral [Recovering/Resolving]
